FAERS Safety Report 6312635-X (Version None)
Quarter: 2009Q3

REPORT INFORMATION
  Report Type: 
  Country: None (occurrence: None)
  Receive Date: 20090814
  Receipt Date: 20090806
  Transmission Date: 20100115
  Serious: Yes (Other)
  Sender: FDA-Public Use
  Company Number: CHPA2009US16498

PATIENT
  Age: 76 Year
  Sex: Female
  Weight: 68 kg

DRUGS (1)
  1. FERROUS SULFATE TAB [Suspect]
     Indication: MINERAL SUPPLEMENTATION
     Dosage: 320 MG, QD, ORAL
     Route: 048
     Dates: start: 20070101

REACTIONS (2)
  - DISEASE RECURRENCE [None]
  - TRANSIENT ISCHAEMIC ATTACK [None]
